FAERS Safety Report 8352434-0 (Version None)
Quarter: 2012Q2

REPORT INFORMATION
  Report Type: 
  Country: None (occurrence: None)
  Receive Date: 20120511
  Receipt Date: 20120508
  Transmission Date: 20120825
  Serious: Yes (Death, Life-Threatening, Hospitalization, Other)
  Sender: FDA-Public Use
  Company Number: IL-SANOFI-AVENTIS-2011SA075276

PATIENT
  Age: 72 Year
  Sex: Female
  Weight: 55 kg

DRUGS (19)
  1. BEVACIZUMAB [Suspect]
     Dosage: TOTAL DOSE 828 MG
     Route: 042
     Dates: start: 20101025, end: 20101025
  2. CARBOPLATIN [Suspect]
     Dosage: FORM: VIALDOSE LEVEL: 5 AUC
     Route: 042
     Dates: start: 20101025, end: 20101025
  3. DOCETAXEL [Suspect]
     Dosage: FORM: VIALDOSE LEVEL: 75 MG/M2
     Route: 042
     Dates: start: 20101025, end: 20101025
  4. BEVACIZUMAB [Suspect]
     Dosage: TOTAL DOSE 828 MG
     Route: 042
     Dates: start: 20100728, end: 20100728
  5. TRASTUZUMAB [Suspect]
     Dosage: DOSE LEVEL:6 MG/KG
     Route: 042
     Dates: start: 20101025, end: 20101025
  6. SIMVASTATIN [Concomitant]
     Route: 048
  7. TRASTUZUMAB [Suspect]
     Route: 042
     Dates: start: 20100728, end: 20100728
  8. TRASTUZUMAB [Suspect]
     Route: 065
  9. RAMIPRIL [Concomitant]
     Route: 048
  10. DISOTHIAZIDE [Concomitant]
     Route: 048
  11. DOCETAXEL [Suspect]
     Route: 065
  12. CARBOPLATIN [Suspect]
     Route: 065
  13. CITALOPRAM HYDROBROMIDE [Concomitant]
     Route: 048
  14. MICROPIRIN [Concomitant]
     Route: 048
  15. BONDORMIN [Concomitant]
     Route: 048
  16. OMEPRAZOLE [Concomitant]
     Route: 048
     Dates: start: 20000101
  17. DOCETAXEL [Suspect]
     Dosage: FORM: VIALDOSE LEVEL: 75 MG/M2
     Route: 042
     Dates: start: 20100728, end: 20100728
  18. BEVACIZUMAB [Suspect]
     Route: 065
  19. CARBOPLATIN [Suspect]
     Dosage: FORM: VIALDOSE LEVEL: 5 AUC
     Route: 042
     Dates: start: 20100728, end: 20100728

REACTIONS (7)
  - MULTI-ORGAN FAILURE [None]
  - UROSEPSIS [None]
  - BLOOD PRESSURE ABNORMAL [None]
  - CEREBRAL HAEMORRHAGE [None]
  - MYOCARDIAL INFARCTION [None]
  - HEART RATE ABNORMAL [None]
  - NEUTROPENIA [None]
